FAERS Safety Report 14316527 (Version 11)
Quarter: 2022Q3

REPORT INFORMATION
  Report Type: Report from Study
  Country: GB (occurrence: GB)
  Receive Date: 20171222
  Receipt Date: 20220919
  Transmission Date: 20221027
  Serious: Yes (Other)
  Sender: FDA-Public Use
  Company Number: GB-JNJFOC-20170516914

PATIENT

DRUGS (18)
  1. DEXAMETHASONE [Suspect]
     Active Substance: DEXAMETHASONE
     Indication: Plasma cell myeloma
     Dosage: 20 MG ON DAYS 1, 2,8, 9, 15, 16, 22 AND 23
     Route: 048
     Dates: start: 20170328, end: 20170408
  2. DEXAMETHASONE [Suspect]
     Active Substance: DEXAMETHASONE
     Dosage: 12 MG ON DAYS 1, 2, 8, 9, 15, 16, 22 AND 23
     Route: 048
     Dates: start: 20170418
  3. BORTEZOMIB [Suspect]
     Active Substance: BORTEZOMIB
     Indication: Plasma cell myeloma
     Dosage: 2.6 MG/M2, WEEKLY,ON DAYS 1,4,8,AND 11
     Route: 058
     Dates: start: 20170328, end: 20170407
  4. BORTEZOMIB [Suspect]
     Active Substance: BORTEZOMIB
     Dosage: ,WEEKLY 1.8 MG/M2,ON DAYS 1,4,8,AND 11
     Route: 058
     Dates: start: 20170418
  5. PLACEBO [Suspect]
     Active Substance: UNSPECIFIED INGREDIENT
     Indication: Plasma cell myeloma
     Dosage: UNK, QD
     Route: 048
     Dates: start: 20170328
  6. VENETOCLAX [Suspect]
     Active Substance: VENETOCLAX
     Indication: Plasma cell myeloma
     Dosage: 1 DF, QD
     Route: 048
     Dates: start: 20170328
  7. METOCLOPRAMIDE [Concomitant]
     Active Substance: METOCLOPRAMIDE
     Indication: Antiemetic supportive care
     Dosage: UNK, 10-20 MG PRN
     Route: 048
     Dates: start: 20170328
  8. FUROSEMIDE [Concomitant]
     Active Substance: FUROSEMIDE
     Indication: Hypertension
     Dosage: 40 MG, QD
     Route: 048
     Dates: start: 20170407, end: 20170407
  9. LOPERAMIDE [Concomitant]
     Active Substance: LOPERAMIDE
     Indication: Diarrhoea
     Dosage: 4 MG, PRN
     Route: 048
     Dates: start: 20170527
  10. BACTRIM [Concomitant]
     Active Substance: SULFAMETHOXAZOLE\TRIMETHOPRIM
     Indication: Supportive care
     Dosage: 480 MG, QD
     Route: 048
     Dates: start: 20170328
  11. BACTRIM [Concomitant]
     Active Substance: SULFAMETHOXAZOLE\TRIMETHOPRIM
     Indication: Infection prophylaxis
  12. LANSOPRAZOLE [Concomitant]
     Active Substance: LANSOPRAZOLE
     Indication: Supportive care
     Dosage: 30 MG, QD
     Route: 048
     Dates: start: 20131108
  13. LANSOPRAZOLE [Concomitant]
     Active Substance: LANSOPRAZOLE
     Indication: Antacid therapy
  14. BISOPROLOL [Concomitant]
     Active Substance: BISOPROLOL
     Indication: Hypertension
     Dosage: 25 MG, QD
     Route: 048
     Dates: start: 20110224
  15. ACYCLOVIR [Concomitant]
     Active Substance: ACYCLOVIR
     Indication: Supportive care
     Dosage: 400 MG, QD
     Route: 048
     Dates: start: 20170327
  16. ACYCLOVIR [Concomitant]
     Active Substance: ACYCLOVIR
     Indication: Infection prophylaxis
     Dosage: 800 MG
     Route: 048
     Dates: start: 20170327
  17. ALLOPURINOL [Concomitant]
     Active Substance: ALLOPURINOL
     Indication: Supportive care
     Dosage: 300 MG, QD
     Route: 048
     Dates: start: 20170327
  18. ALLOPURINOL [Concomitant]
     Active Substance: ALLOPURINOL
     Indication: Prophylaxis

REACTIONS (1)
  - Thrombocytopenia [Recovered/Resolved]

NARRATIVE: CASE EVENT DATE: 20170413
